FAERS Safety Report 4506323-X (Version None)
Quarter: 2004Q4

REPORT INFORMATION
  Report Type: 
  Country: None (occurrence: None)
  Receive Date: 20041025
  Receipt Date: 20040105
  Transmission Date: 20050328
  Serious: Yes (Hospitalization)
  Sender: FDA-Public Use
  Company Number: US-JNJFOC-20031104737

PATIENT
  Age: 78 Year
  Sex: Male
  Weight: 83.9154 kg

DRUGS (5)
  1. REMICADE [Suspect]
     Indication: PSORIATIC ARTHROPATHY
     Dates: start: 20020101
  2. REMICADE [Suspect]
     Indication: PSORIATIC ARTHROPATHY
     Dates: start: 20031101
  3. ASPIRIN TAB [Concomitant]
  4. METHOTREXATE [Concomitant]
  5. COZAAR [Concomitant]

REACTIONS (2)
  - ACARODERMATITIS [None]
  - SYNCOPE [None]
